FAERS Safety Report 5684171-5 (Version None)
Quarter: 2008Q1

REPORT INFORMATION
  Report Type: 
  Country: None (occurrence: None)
  Receive Date: 20080328
  Receipt Date: 20070925
  Transmission Date: 20080703
  Serious: No
  Sender: FDA-Public Use
  Company Number: US-AMGEN-KDL244744

PATIENT
  Sex: Female

DRUGS (2)
  1. NEULASTA [Suspect]
     Indication: CHEMOTHERAPY
     Dates: start: 20070831
  2. GEMZAR [Concomitant]
     Dates: start: 20070823

REACTIONS (3)
  - PRURITUS [None]
  - PYREXIA [None]
  - ROSEOLA [None]
